FAERS Safety Report 6780446-7 (Version None)
Quarter: 2010Q2

REPORT INFORMATION
  Report Type: 
  Country: None (occurrence: None)
  Receive Date: 20100621
  Receipt Date: 20100614
  Transmission Date: 20101027
  Serious: Yes (Hospitalization)
  Sender: FDA-Public Use
  Company Number: SP-2010-03380

PATIENT
  Age: 50 Year
  Sex: Male

DRUGS (1)
  1. BCG  THERAPEUTICS [Suspect]
     Indication: BLADDER CANCER
     Dosage: NOT REPORTED
     Route: 043

REACTIONS (10)
  - BOVINE TUBERCULOSIS [None]
  - FAECES PALE [None]
  - FATIGUE [None]
  - HEPATOMEGALY [None]
  - JAUNDICE [None]
  - PYREXIA [None]
  - SEPSIS [None]
  - SPLENOMEGALY [None]
  - URINE COLOUR ABNORMAL [None]
  - VOMITING [None]
